FAERS Safety Report 11336292 (Version 8)
Quarter: 2015Q4

REPORT INFORMATION
  Report Type: Report from Study
  Country: TR (occurrence: TR)
  Receive Date: 20150804
  Receipt Date: 20151201
  Transmission Date: 20160304
  Serious: Yes (Death, Life-Threatening, Hospitalization, Disabling, Other)
  Sender: FDA-Public Use
  Company Number: TR-SEATTLE GENETICS-2015SGN01267

PATIENT

DRUGS (9)
  1. DOXORUBICIN [Suspect]
     Active Substance: DOXORUBICIN
     Indication: HODGKIN^S DISEASE
     Dosage: 25 MG/M2, UNK
     Route: 042
     Dates: start: 20150721, end: 20150721
  2. LENOGRASTIM [Concomitant]
     Active Substance: LENOGRASTIM
     Indication: PROPHYLAXIS
     Dosage: UNK
     Route: 065
     Dates: start: 20150728
  3. CANDESARTAN CILEXETIL-HYDROCHLOROTHIAZIDE [Concomitant]
     Active Substance: CANDESARTAN CILEXETIL\HYDROCHLOROTHIAZIDE
     Dosage: 16 MG, QD
     Route: 065
     Dates: start: 2001
  4. METFORMIN [Concomitant]
     Active Substance: METFORMIN HYDROCHLORIDE
     Dosage: UNK
     Dates: start: 2001
  5. DACARBAZINE. [Suspect]
     Active Substance: DACARBAZINE
     Indication: HODGKIN^S DISEASE
     Dosage: 375 MG/M2, UNK
     Route: 042
     Dates: start: 20150721, end: 20150721
  6. METOPROLOL SUCCINATE. [Concomitant]
     Active Substance: METOPROLOL SUCCINATE
     Dosage: 50 MG, QD
     Route: 065
     Dates: start: 2001
  7. BRENTUXIMAB VEDOTIN [Suspect]
     Active Substance: BRENTUXIMAB VEDOTIN
     Indication: HODGKIN^S DISEASE
     Dosage: 127 MG, UNK
     Route: 042
     Dates: start: 20150721, end: 20150721
  8. VINBLASTINE [Suspect]
     Active Substance: VINBLASTINE
     Indication: HODGKIN^S DISEASE
     Dosage: 12 MG, UNK
     Route: 042
     Dates: start: 20150721, end: 20150721
  9. PIOGLITAZONE HCL AND METFORMIN HCL [Concomitant]
     Active Substance: METFORMIN HYDROCHLORIDE\PIOGLITAZONE HYDROCHLORIDE
     Dosage: 2001 UNK, UNK
     Route: 065
     Dates: start: 2001, end: 20150729

REACTIONS (19)
  - Peripheral artery thrombosis [Recovered/Resolved with Sequelae]
  - Postoperative wound infection [Not Recovered/Not Resolved]
  - Muscle necrosis [None]
  - Blood glucose increased [Recovered/Resolved with Sequelae]
  - Haemoglobin decreased [None]
  - Cardiac arrest [None]
  - Sepsis [Recovered/Resolved with Sequelae]
  - Acute kidney injury [None]
  - Thrombocytopenia [None]
  - Procedural complication [None]
  - Escherichia test positive [None]
  - Septic shock [None]
  - Leg amputation [None]
  - Atrial fibrillation [Recovered/Resolved with Sequelae]
  - Pseudomonas infection [None]
  - Soft tissue infection [Fatal]
  - Febrile neutropenia [Recovered/Resolved with Sequelae]
  - Streptococcus test positive [None]
  - Acinetobacter infection [None]

NARRATIVE: CASE EVENT DATE: 20150729
